FAERS Safety Report 9431919 (Version 2)
Quarter: 2013Q3

REPORT INFORMATION
  Report Type: Report from Study
  Country: CL (occurrence: CL)
  Receive Date: 20130731
  Receipt Date: 20130731
  Transmission Date: 20140515
  Serious: Yes (Other)
  Sender: FDA-Public Use
  Company Number: PHHY2013CL080444

PATIENT
  Age: 70 Year
  Sex: Female

DRUGS (5)
  1. ACLASTA [Suspect]
     Indication: OSTEOPOROSIS
     Dosage: UNK UKN, UNK
     Route: 042
     Dates: start: 201107
  2. ACLASTA [Suspect]
     Dosage: UNK UKN, UNK
     Route: 042
     Dates: start: 201207
  3. ALEXIA [Concomitant]
     Dosage: UNK UKN, UNK
     Route: 048
  4. PREDNISONE [Concomitant]
     Indication: ASTHMA
     Dosage: 25 MG, QD
     Route: 048
  5. ENALAPRIL [Concomitant]
     Indication: HYPERTENSION
     Dosage: UNK UKN, UNK

REACTIONS (5)
  - Pneumonia [Recovered/Resolved]
  - Adenoidal disorder [Not Recovered/Not Resolved]
  - Nasal congestion [Unknown]
  - Dyspnoea [Unknown]
  - Tongue disorder [Unknown]
